FAERS Safety Report 9004336 (Version 3)
Quarter: 2013Q1

REPORT INFORMATION
  Report Type: Spontaneous
  Country: US (occurrence: US)
  Receive Date: 20130108
  Receipt Date: 20130308
  Transmission Date: 20140127
  Serious: Yes (Hospitalization, Other)
  Sender: FDA-Public Use
  Company Number: US-ASTELLAS-2013US000125

PATIENT
  Age: 74 Year
  Sex: Male
  Weight: 96 kg

DRUGS (18)
  1. XTANDI [Suspect]
     Indication: PROSTATE CANCER METASTATIC
     Dosage: 160 MG, UID/QD
     Route: 048
     Dates: start: 20121024, end: 20121218
  2. LASIX                              /00032601/ [Suspect]
     Indication: CARDIAC FAILURE CONGESTIVE
     Dosage: 40 MG, UID/QD
     Route: 048
     Dates: start: 20120727
  3. LISINOPRIL [Suspect]
     Indication: PRODUCT USED FOR UNKNOWN INDICATION
     Dosage: UNK
     Route: 065
  4. LUPRON [Concomitant]
     Indication: PROSTATE CANCER
     Dosage: 30 MG, Q4 MONTHS
     Route: 065
     Dates: start: 20111130
  5. LUPRON [Concomitant]
     Indication: METASTASIS
  6. ROXICODONE [Concomitant]
     Indication: PROSTATE CANCER
     Dosage: 5 MG, PRN Q4H
     Route: 048
     Dates: start: 20120404
  7. ROXICODONE [Concomitant]
     Indication: METASTASIS
  8. PROVENTIL                          /00139501/ [Concomitant]
     Indication: CHRONIC OBSTRUCTIVE PULMONARY DISEASE
     Dosage: 0.5 ML, PRN Q4H
     Route: 055
     Dates: start: 20120717
  9. PROVENTIL                          /00139501/ [Concomitant]
     Indication: DYSPNOEA
     Dosage: 2 PUFF, PRN Q6 H
     Route: 055
  10. TOPROL [Concomitant]
     Indication: CARDIAC FAILURE CONGESTIVE
     Dosage: 50 MG, UID/QD
     Route: 048
     Dates: start: 20120727
  11. TOPROL [Concomitant]
     Indication: CORONARY ARTERY DISEASE
  12. AMBIEN [Concomitant]
     Indication: SLEEP DISORDER
     Dosage: 5 MG, PRN AT HS
     Route: 065
     Dates: start: 20120926
  13. ZANTAC [Concomitant]
     Indication: PRODUCT USED FOR UNKNOWN INDICATION
     Dosage: UNK
     Route: 065
  14. XGEVA [Concomitant]
     Indication: PROSTATE CANCER
     Dosage: EVERY 4 OR 6 WEEKS
     Route: 058
  15. XGEVA [Concomitant]
     Indication: METASTASIS
  16. DELTASONE                          /00016001/ [Concomitant]
     Indication: PROSTATE CANCER
     Dosage: 5 MG, BID
     Route: 048
  17. DELTASONE                          /00016001/ [Concomitant]
     Indication: METASTASIS
  18. STOOL SOFTENER [Concomitant]
     Indication: PRODUCT USED FOR UNKNOWN INDICATION
     Dosage: 2 DF, PRN
     Route: 048

REACTIONS (14)
  - Hyperkalaemia [Recovered/Resolved]
  - Azotaemia [Unknown]
  - Hypovolaemic shock [Unknown]
  - Haematemesis [Unknown]
  - Cardiac failure congestive [Not Recovered/Not Resolved]
  - Renal failure acute [Recovering/Resolving]
  - Hypotension [Recovering/Resolving]
  - Delirium [Recovered/Resolved]
  - Renal failure acute [Not Recovered/Not Resolved]
  - Anaemia of chronic disease [Unknown]
  - Rhinorrhoea [Recovering/Resolving]
  - Arthralgia [Recovering/Resolving]
  - Bone pain [Recovering/Resolving]
  - Fatigue [Recovering/Resolving]
